FAERS Safety Report 16977329 (Version 2)
Quarter: 2019Q4

REPORT INFORMATION
  Report Type: Spontaneous
  Country: JP (occurrence: JP)
  Receive Date: 20191031
  Receipt Date: 20191202
  Transmission Date: 20200122
  Serious: Yes (Other)
  Sender: FDA-Public Use
  Company Number: JP-TEVA-2019-JP-1131664

PATIENT
  Sex: Male

DRUGS (7)
  1. OBINUTUZUMAB. [Suspect]
     Active Substance: OBINUTUZUMAB
     Route: 041
     Dates: start: 20190905
  2. OBINUTUZUMAB. [Suspect]
     Active Substance: OBINUTUZUMAB
     Route: 041
     Dates: start: 20190509
  3. OBINUTUZUMAB. [Suspect]
     Active Substance: OBINUTUZUMAB
     Indication: B-CELL LYMPHOMA
     Route: 041
     Dates: start: 20190411
  4. BENDAMUSTINE HYDROCHLORIDE. [Suspect]
     Active Substance: BENDAMUSTINE HYDROCHLORIDE
     Indication: B-CELL LYMPHOMA
     Dosage: 90 MG/M2X1/DAY, CYCLIC
     Route: 042
     Dates: start: 20190411, end: 20190412
  5. OBINUTUZUMAB. [Suspect]
     Active Substance: OBINUTUZUMAB
     Route: 041
     Dates: start: 20190425
  6. OBINUTUZUMAB. [Suspect]
     Active Substance: OBINUTUZUMAB
     Route: 041
     Dates: start: 20191024
  7. BENDAMUSTINE HYDROCHLORIDE. [Suspect]
     Active Substance: BENDAMUSTINE HYDROCHLORIDE
     Dosage: 90 MG/M2X1/DAY, CYCLIC
     Route: 042
     Dates: start: 20190904, end: 20190905

REACTIONS (2)
  - Enterocolitis [Recovered/Resolved]
  - Abdominal distension [Recovered/Resolved]

NARRATIVE: CASE EVENT DATE: 20190704
